FAERS Safety Report 16944757 (Version 1)
Quarter: 2019Q4

REPORT INFORMATION
  Report Type: Spontaneous
  Country: US (occurrence: US)
  Receive Date: 20191021
  Receipt Date: 20191021
  Transmission Date: 20200122
  Serious: Yes (Disabling)
  Sender: FDA-Public Use
  Company Number: None

PATIENT
  Age: 24 Year
  Sex: Female

DRUGS (1)
  1. PARAGARD T 380A [Suspect]
     Active Substance: COPPER

REACTIONS (14)
  - Depression [None]
  - Liver injury [None]
  - Complication of device removal [None]
  - Sinusitis [None]
  - Panic attack [None]
  - Acne [None]
  - Device toxicity [None]
  - Tissue injury [None]
  - Renal disorder [None]
  - Brain injury [None]
  - Hypersensitivity [None]
  - Disturbance in attention [None]
  - Blindness [None]
  - Rash [None]

NARRATIVE: CASE EVENT DATE: 20161212
